FAERS Safety Report 9630721 (Version 1)
Quarter: 2013Q4

REPORT INFORMATION
  Report Type: Spontaneous
  Country: US (occurrence: None)
  Receive Date: 20131016
  Receipt Date: 20131016
  Transmission Date: 20140711
  Serious: Yes (Hospitalization)
  Sender: FDA-Public Use
  Company Number: None

PATIENT
  Age: 78 Year
  Sex: Male
  Weight: 56.25 kg

DRUGS (9)
  1. LEVETIRACETAM (LEVETIRACETAM) [Suspect]
     Indication: CONVULSION
     Route: 048
     Dates: start: 20110904, end: 20131015
  2. VALPROIC ACID [Suspect]
     Indication: CONVULSION
     Route: 048
     Dates: start: 20110419, end: 20130920
  3. ALBUTEROL NEBULIZER [Concomitant]
  4. SPIRIVA [Concomitant]
  5. APAP [Concomitant]
  6. DNE [Concomitant]
  7. CALCIUM CARBONATE [Concomitant]
  8. CYANOBALAMIN [Concomitant]
  9. VITAMIN D2 [Concomitant]

REACTIONS (2)
  - Oxygen saturation decreased [None]
  - Anticonvulsant drug level increased [None]
